FAERS Safety Report 12423527 (Version 1)
Quarter: 2016Q2

REPORT INFORMATION
  Report Type: Spontaneous
  Country: US (occurrence: None)
  Receive Date: 20160531
  Receipt Date: 20160531
  Transmission Date: 20160815
  Serious: Yes (Other)
  Sender: FDA-Public Use
  Company Number: None

PATIENT
  Age: 52 Year
  Sex: Male
  Weight: 111.13 kg

DRUGS (13)
  1. FLUTICASONE [Concomitant]
     Active Substance: FLUTICASONE\FLUTICASONE PROPIONATE
  2. LISINOPRIL. [Concomitant]
     Active Substance: LISINOPRIL
  3. ZINC [Concomitant]
     Active Substance: ZINC\ZINC CHLORIDE
  4. CALCIUM + D [Concomitant]
     Active Substance: CALCIUM\VITAMIN D
  5. SIMVASTATIN. [Concomitant]
     Active Substance: SIMVASTATIN
  6. VITAMIN E [Concomitant]
     Active Substance: .ALPHA.-TOCOPHEROL
  7. OMEPRAZOLE. [Concomitant]
     Active Substance: OMEPRAZOLE
  8. DIVALPROEX SOD ER [Concomitant]
     Active Substance: DIVALPROEX SODIUM
  9. POTASSIUM [Concomitant]
     Active Substance: POTASSIUM
  10. SUPER B [Concomitant]
  11. SAPHRIS [Suspect]
     Active Substance: ASENAPINE MALEATE
     Indication: PRODUCT USED FOR UNKNOWN INDICATION
     Dosage: 30 TABLET(S) AT BEDTIME TAKEN UNDER THE TONGUE
     Route: 060
     Dates: start: 20160510, end: 20160512
  12. VITAMIN C [Concomitant]
     Active Substance: ASCORBIC ACID
  13. MAGNESIUM [Concomitant]
     Active Substance: MAGNESIUM

REACTIONS (7)
  - Feeling abnormal [None]
  - Hypoaesthesia oral [None]
  - Hypoaesthesia [None]
  - Altered state of consciousness [None]
  - Hypersomnia [None]
  - Sensory disturbance [None]
  - Therapy change [None]

NARRATIVE: CASE EVENT DATE: 20160510
